FAERS Safety Report 16901571 (Version 2)
Quarter: 2020Q3

REPORT INFORMATION
  Report Type: Report from Study
  Country: US (occurrence: US)
  Receive Date: 20191010
  Receipt Date: 20200810
  Transmission Date: 20201102
  Serious: Yes (Hospitalization, Other)
  Sender: FDA-Public Use
  Company Number: US-ROCHE-2198456

PATIENT
  Age: 50 Year
  Sex: Female
  Weight: 98.1 kg

DRUGS (1)
  1. ATEZOLIZUMAB. [Suspect]
     Active Substance: ATEZOLIZUMAB
     Indication: BILIARY NEOPLASM
     Dosage: DATE OF MOST RECENT DOSE 19/SEP/2018.
     Route: 042
     Dates: start: 20180919

REACTIONS (3)
  - Infection [Recovered/Resolved]
  - Hypercalcaemia [Unknown]
  - Hypotension [Recovered/Resolved]

NARRATIVE: CASE EVENT DATE: 20181003
